FAERS Safety Report 4981092-8 (Version None)
Quarter: 2006Q2

REPORT INFORMATION
  Report Type: 
  Country: None (occurrence: None)
  Receive Date: 20060421
  Receipt Date: 20060324
  Transmission Date: 20061013
  Serious: Yes (Death)
  Sender: FDA-Public Use
  Company Number: 06H-163-0306917-00

PATIENT
  Age: 63 Year
  Sex: Male
  Weight: 70 kg

DRUGS (3)
  1. PROPOFOL [Suspect]
     Indication: STATUS EPILEPTICUS
     Dosage: INTRAVENOUS
     Route: 042
  2. DOPAMINE HCL [Suspect]
     Indication: HEART RATE DECREASED
  3. NEOSYNEPHRINE INJECTION (NEO-SYNEPHRINE HYDROCHLORIDE INJECTION) (PHEN [Suspect]
     Indication: BLOOD PRESSURE SYSTOLIC

REACTIONS (3)
  - CARDIAC ARREST [None]
  - DRUG INTERACTION [None]
  - PROPOFOL INFUSION SYNDROME [None]
